FAERS Safety Report 4970467-9 (Version None)
Quarter: 2006Q2

REPORT INFORMATION
  Report Type: 
  Country: None (occurrence: None)
  Receive Date: 20060411
  Receipt Date: 20060411
  Transmission Date: 20061013
  Serious: No
  Sender: FDA-Public Use
  Company Number: None

PATIENT
  Age: 53 Year
  Sex: Female
  Weight: 52.6173 kg

DRUGS (1)
  1. FACTIVE [Suspect]
     Indication: SINUSITIS
     Dosage: 5    1 PER DAY    PO
     Route: 048
     Dates: start: 20060303, end: 20060308

REACTIONS (3)
  - ARTHRALGIA [None]
  - ASTHENIA [None]
  - TENDON RUPTURE [None]
